FAERS Safety Report 11523348 (Version 1)
Quarter: 2015Q3

REPORT INFORMATION
  Report Type: Spontaneous
  Country: US (occurrence: US)
  Receive Date: 20150903
  Receipt Date: 20150903
  Transmission Date: 20151125
  Serious: No
  Sender: FDA-Public Use
  Company Number: US-ELI_LILLY_AND_COMPANY-US201302001389

PATIENT
  Sex: Female

DRUGS (1)
  1. CYMBALTA [Suspect]
     Active Substance: DULOXETINE HYDROCHLORIDE
     Indication: FIBROMYALGIA
     Dosage: 1 DF, UNKNOWN
     Dates: start: 2000

REACTIONS (6)
  - Back pain [Unknown]
  - Tooth abscess [Unknown]
  - Nervousness [Unknown]
  - Nausea [Unknown]
  - Gait disturbance [Unknown]
  - Drug withdrawal syndrome [Unknown]
